FAERS Safety Report 8466149-1 (Version None)
Quarter: 2012Q2

REPORT INFORMATION
  Report Type: 
  Country: None (occurrence: None)
  Receive Date: 20120620
  Receipt Date: 20120620
  Transmission Date: 20120825
  Serious: Yes (Hospitalization)
  Sender: FDA-Public Use
  Company Number: None

PATIENT
  Sex: Male

DRUGS (3)
  1. MELATONIN [Concomitant]
  2. RISPERIDONE [Suspect]
     Indication: ATTENTION DEFICIT/HYPERACTIVITY DISORDER
     Dosage: 2 MG TWICE A DAY PO
     Route: 048
  3. SEROQUEL [Concomitant]

REACTIONS (5)
  - OVERDOSE [None]
  - DYSPNOEA [None]
  - APPARENT DEATH [None]
  - CONVULSION [None]
  - FOAMING AT MOUTH [None]
